FAERS Safety Report 5469424-8 (Version None)
Quarter: 2007Q3

REPORT INFORMATION
  Report Type: 
  Country: None (occurrence: None)
  Receive Date: 20070925
  Receipt Date: 20070925
  Transmission Date: 20080115
  Serious: Yes (Life-Threatening, Hospitalization)
  Sender: FDA-Public Use
  Company Number: None

PATIENT
  Age: 51 Year
  Sex: Male
  Weight: 86.1834 kg

DRUGS (2)
  1. BENICAR HCT [Suspect]
     Indication: HYPERTENSION
     Dosage: 20-12.5   1XDAY  PO
     Route: 048
     Dates: start: 20070908, end: 20070910
  2. BENICAR [Suspect]
     Indication: HYPERTENSION
     Dosage: 20   1XDAY  PO
     Route: 048
     Dates: start: 20070912, end: 20070917

REACTIONS (2)
  - ORGAN FAILURE [None]
  - SHOCK [None]
